FAERS Safety Report 5536153-1 (Version None)
Quarter: 2007Q4

REPORT INFORMATION
  Report Type: 
  Country: None (occurrence: None)
  Receive Date: 20071206
  Receipt Date: 20071129
  Transmission Date: 20080405
  Serious: Yes (Hospitalization)
  Sender: FDA-Public Use
  Company Number: DEWYE726308JUN05

PATIENT
  Sex: Female

DRUGS (24)
  1. SIROLIMUS [Suspect]
     Indication: PROPHYLAXIS AGAINST TRANSPLANT REJECTION
     Route: 048
     Dates: start: 20040311, end: 20040312
  2. SIROLIMUS [Suspect]
     Route: 048
     Dates: start: 20040313, end: 20041010
  3. SIROLIMUS [Suspect]
     Route: 048
     Dates: start: 20041011, end: 20041018
  4. SIROLIMUS [Suspect]
     Route: 048
     Dates: start: 20041019, end: 20041211
  5. SIROLIMUS [Suspect]
     Route: 048
     Dates: start: 20050916
  6. MYCOPHENOLATE MOFETIL [Suspect]
     Indication: PROPHYLAXIS AGAINST TRANSPLANT REJECTION
     Route: 048
     Dates: start: 20040311, end: 20040311
  7. MYCOPHENOLATE MOFETIL [Suspect]
     Route: 048
     Dates: start: 20040312, end: 20040609
  8. MYCOPHENOLATE MOFETIL [Suspect]
     Route: 048
     Dates: start: 20040610, end: 20041210
  9. MYCOPHENOLATE MOFETIL [Suspect]
     Route: 048
     Dates: end: 20050509
  10. MYCOPHENOLATE MOFETIL [Suspect]
     Route: 048
     Dates: start: 20050516
  11. PREDNISOLONE SODIUM SUCCINATE INJ [Suspect]
     Indication: PROPHYLAXIS AGAINST TRANSPLANT REJECTION
     Route: 048
     Dates: start: 20040311, end: 20040311
  12. PREDNISOLONE SODIUM SUCCINATE INJ [Suspect]
     Route: 048
     Dates: start: 20040312, end: 20040312
  13. PREDNISOLONE SODIUM SUCCINATE INJ [Suspect]
     Route: 048
  14. PRIMAXIN [Concomitant]
     Indication: URINARY TRACT INFECTION
     Dosage: 3G PER DAY
     Route: 042
     Dates: start: 20060307, end: 20060311
  15. PREDNISOLONE [Suspect]
     Indication: PROPHYLAXIS AGAINST TRANSPLANT REJECTION
     Route: 048
     Dates: start: 20040311
  16. ROCEPHIN [Concomitant]
     Indication: GASTROENTERITIS
     Route: 042
     Dates: start: 20051012, end: 20051018
  17. CLONT [Concomitant]
     Indication: GASTROENTERITIS
     Route: 042
     Dates: start: 20051012, end: 20051018
  18. CIPROFLOXACIN [Concomitant]
     Indication: URINARY TRACT INFECTION
     Dates: start: 20051013, end: 20051023
  19. ZENEPAX [Suspect]
     Indication: PROPHYLAXIS AGAINST TRANSPLANT REJECTION
     Route: 042
     Dates: start: 20040311, end: 20040311
  20. ZENEPAX [Suspect]
     Route: 042
     Dates: start: 20040301, end: 20040506
  21. DECORTIN [Suspect]
     Indication: PROPHYLAXIS AGAINST TRANSPLANT REJECTION
     Route: 048
     Dates: start: 20040313, end: 20040101
  22. DECORTIN [Suspect]
     Dates: start: 20041013, end: 20041211
  23. DECORTIN [Suspect]
     Dosage: UNKNOWN
     Route: 048
  24. DECORTIN [Suspect]
     Route: 048
     Dates: start: 20040101, end: 20041012

REACTIONS (3)
  - GASTROENTERITIS [None]
  - URINARY TRACT INFECTION [None]
  - UROSEPSIS [None]
